FAERS Safety Report 9711568 (Version 2)
Quarter: 2014Q2

REPORT INFORMATION
  Report Type: Report from Study
  Country: FR (occurrence: FR)
  Receive Date: 20131126
  Receipt Date: 20140404
  Transmission Date: 20141212
  Serious: Yes (Hospitalization)
  Sender: FDA-Public Use
  Company Number: FR-CELGENEUS-056-21880-13112431

PATIENT
  Age: 74 Year
  Sex: Male

DRUGS (17)
  1. BLINDED REVLIMID [Suspect]
     Indication: DIFFUSE LARGE B-CELL LYMPHOMA
     Dosage: 25 MILLIGRAM
     Route: 048
     Dates: start: 20131025, end: 20131109
  2. RITUXIMAB [Concomitant]
     Indication: LYMPHOMA
     Route: 065
     Dates: start: 20130221, end: 20130718
  3. CYCLOPHOSPHAMIDE [Concomitant]
     Indication: LYMPHOMA
     Route: 065
     Dates: start: 20130221, end: 20130718
  4. DOXORUBICIN [Concomitant]
     Indication: LYMPHOMA
     Route: 065
     Dates: start: 20130221, end: 20130718
  5. VINCRISTINE [Concomitant]
     Indication: LYMPHOMA
     Route: 065
     Dates: start: 20130221, end: 20130718
  6. ASPIRINE [Concomitant]
     Indication: THROMBOSIS PROPHYLAXIS
     Route: 065
  7. PREDNISOLONE [Concomitant]
     Indication: LYMPHOMA
     Route: 065
     Dates: start: 20130221, end: 20130718
  8. AMIODARONE [Concomitant]
     Indication: ATRIAL FIBRILLATION
     Route: 065
  9. EZETIMIBE [Concomitant]
     Indication: DYSLIPIDAEMIA
     Route: 065
  10. VALSARTAN [Concomitant]
     Indication: CARDIOMYOPATHY
     Route: 065
  11. FENTANYL [Concomitant]
     Indication: PAIN
     Dosage: 8 MICROGRAM
     Route: 065
  12. TRAMADOL [Concomitant]
     Indication: PAIN
     Dosage: 200 MILLIGRAM
     Route: 065
  13. PARACETAMOL [Concomitant]
     Indication: PAIN
     Dosage: 4 GRAM
     Route: 065
  14. ACECLOFENAC [Concomitant]
     Indication: PAIN
     Dosage: 100-200MG
     Route: 065
  15. ATORVASTATIN [Concomitant]
     Indication: DYSLIPIDAEMIA
     Route: 065
     Dates: end: 201311
  16. ESOMEPRAZOLE [Concomitant]
     Indication: PROPHYLAXIS
     Dosage: 40 MILLIGRAM
     Route: 065
  17. HYDROCHLOROTHIAZIDE [Concomitant]
     Indication: CARDIOMYOPATHY
     Dosage: 40 MILLIGRAM
     Route: 065

REACTIONS (2)
  - Atrial fibrillation [Recovered/Resolved with Sequelae]
  - Dyspnoea [Recovered/Resolved with Sequelae]
